FAERS Safety Report 10204217 (Version 2)
Quarter: 2014Q2

REPORT INFORMATION
  Report Type: Spontaneous
  Country: US (occurrence: None)
  Receive Date: 20140527
  Receipt Date: 20140530
  Transmission Date: 20141212
  Serious: Yes (Death)
  Sender: FDA-Public Use
  Company Number: ADR-2014-00874

PATIENT
  Age: 77 Year
  Sex: Male

DRUGS (4)
  1. BACLOFEN [Suspect]
     Indication: PAIN
  2. MORPHINE [Suspect]
  3. BUPIVACAINE INTRATHECAL [Suspect]
  4. FENTANYL INTRATHECAL [Suspect]

REACTIONS (1)
  - Pneumonia [None]
